FAERS Safety Report 8581117-7 (Version None)
Quarter: 2012Q3

REPORT INFORMATION
  Report Type: 
  Country: None (occurrence: None)
  Receive Date: 20120809
  Receipt Date: 20120730
  Transmission Date: 20120928
  Serious: No
  Sender: FDA-Public Use
  Company Number: US-CELGENEUS-163-21880-12033415

PATIENT
  Sex: Male

DRUGS (2)
  1. REVLIMID [Suspect]
     Indication: MULTIPLE MYELOMA
     Dosage: 25 MILLIGRAM
     Route: 048
     Dates: start: 20120305, end: 20120409
  2. VELCADE [Concomitant]
     Indication: MULTIPLE MYELOMA
     Route: 065
     Dates: start: 20120213, end: 20120611

REACTIONS (6)
  - COLOUR BLINDNESS ACQUIRED [None]
  - GAIT DISTURBANCE [None]
  - FATIGUE [None]
  - CONSTIPATION [None]
  - ASTHENIA [None]
  - DIARRHOEA [None]
